FAERS Safety Report 7240982-6 (Version None)
Quarter: 2011Q1

REPORT INFORMATION
  Report Type: 
  Country: None (occurrence: None)
  Receive Date: 20110124
  Receipt Date: 20110111
  Transmission Date: 20110831
  Serious: Yes (Hospitalization)
  Sender: FDA-Public Use
  Company Number: US-ELI_LILLY_AND_COMPANY-US201101002439

PATIENT
  Sex: Male
  Weight: 75 kg

DRUGS (7)
  1. OMEPRAZOLE [Concomitant]
     Indication: GASTROOESOPHAGEAL REFLUX DISEASE
     Dosage: 20 MG, EACH MORNING
     Route: 048
     Dates: start: 20100812
  2. CREON [Concomitant]
     Indication: ENZYME SUPPLEMENTATION
     Dosage: UNK, DAILY (1/D)
     Route: 048
     Dates: start: 20100812
  3. LEVOTHYROXINE [Concomitant]
     Indication: HYPOTHYROIDISM
     Dates: start: 20080101
  4. ROSUVASTATIN CALCIUM [Concomitant]
     Indication: HYPERCHOLESTEROLAEMIA
     Dosage: 1 D/F, EACH EVENING
     Route: 048
     Dates: start: 20070101
  5. CHK-1 INHIBITOR I (LY2603618) [Suspect]
     Indication: PANCREATIC CARCINOMA
     Dosage: 200 MG, OTHER
     Route: 042
     Dates: start: 20100824
  6. GEMCITABINE HYDROCHLORIDE [Suspect]
     Indication: PANCREATIC CARCINOMA
     Dosage: 1000 MG/M2, OTHER
     Route: 042
     Dates: start: 20100823
  7. MIRALAX [Concomitant]
     Indication: CONSTIPATION
     Dates: start: 20100830

REACTIONS (1)
  - HYPOXIA [None]
